FAERS Safety Report 5272874-6 (Version None)
Quarter: 2007Q1

REPORT INFORMATION
  Report Type: 
  Country: None (occurrence: None)
  Receive Date: 20070316
  Receipt Date: 20070306
  Transmission Date: 20070707
  Serious: Yes (Other)
  Sender: FDA-Public Use
  Company Number: 2007RR-06210

PATIENT
  Age: 55 Year
  Sex: Male

DRUGS (3)
  1. CIPROFLOXACIN [Suspect]
     Indication: OSTEOMYELITIS
     Dosage: 1500 MG, QD, ORAL
     Route: 048
  2. CEFALEXIN (CEPHALEXIN) [Concomitant]
  3. OPIOID ANALGESICS [Concomitant]

REACTIONS (4)
  - ANAEMIA MACROCYTIC [None]
  - OPTIC ATROPHY [None]
  - OPTIC NEUROPATHY [None]
  - SCOTOMA [None]
